FAERS Safety Report 8769536 (Version 2)
Quarter: 2013Q1

REPORT INFORMATION
  Report Type: Spontaneous
  Country: US (occurrence: US)
  Receive Date: 20120905
  Receipt Date: 20130110
  Transmission Date: 20140127
  Serious: No
  Sender: FDA-Public Use
  Company Number: US-PFIZER INC-2012214519

PATIENT
  Age: 62 Year
  Sex: Female

DRUGS (10)
  1. LYRICA [Suspect]
     Dosage: UNK
     Dates: start: 20100301, end: 20130108
  2. INSULIN [Concomitant]
     Dosage: UNK
  3. INDOMETHACIN [Concomitant]
     Dosage: UNK
  4. GEMFIBROZIL [Concomitant]
     Dosage: UNK
  5. FENOFIBRATE [Concomitant]
     Dosage: UNK
  6. HYDROCHLOROTHIAZIDE [Concomitant]
     Dosage: UNK
  7. LISINOPRIL [Concomitant]
     Dosage: UNK
  8. AMITRIPTYLINE [Concomitant]
     Dosage: UNK
  9. FOLIC ACID [Concomitant]
     Dosage: UNK
  10. CLONIDINE [Concomitant]
     Dosage: UNK

REACTIONS (3)
  - Burning sensation [Unknown]
  - Insomnia [Unknown]
  - Pain in extremity [Unknown]
